FAERS Safety Report 16809974 (Version 1)
Quarter: 2019Q3

REPORT INFORMATION
  Report Type: Report from Study
  Country: CA (occurrence: CA)
  Receive Date: 20190916
  Receipt Date: 20190916
  Transmission Date: 20191005
  Serious: Yes (Hospitalization, Other)
  Sender: FDA-Public Use
  Company Number: CA-BRISTOL-MYERS SQUIBB COMPANY-BMS-2018-117859

PATIENT
  Sex: Female

DRUGS (1)
  1. ABATACEPT [Suspect]
     Active Substance: ABATACEPT
     Indication: PRODUCT USED FOR UNKNOWN INDICATION
     Dosage: UNK, QWK
     Route: 058
     Dates: start: 20180401

REACTIONS (6)
  - Injection site erythema [Unknown]
  - Fatigue [Unknown]
  - Musculoskeletal pain [Unknown]
  - Haemorrhage [Unknown]
  - Cardiac disorder [Unknown]
  - Arthralgia [Unknown]
